FAERS Safety Report 7138876-X (Version None)
Quarter: 2010Q4

REPORT INFORMATION
  Report Type: 
  Country: None (occurrence: None)
  Receive Date: 20101206
  Receipt Date: 20101125
  Transmission Date: 20110411
  Serious: Yes (Hospitalization)
  Sender: FDA-Public Use
  Company Number: FR-ASTRAZENECA-2010SE56211

PATIENT
  Age: 50 Year
  Sex: Male

DRUGS (11)
  1. CRESTOR [Suspect]
     Route: 048
  2. SORIATANE [Suspect]
     Route: 065
  3. ALDACTONE [Suspect]
     Route: 065
  4. IXEL [Suspect]
     Route: 065
  5. CORVASAL [Suspect]
     Route: 065
  6. SYMBICORT [Concomitant]
     Dosage: 400 MICROGRAM, TWO TIMES A DAY.
     Route: 055
  7. NEXIUM [Concomitant]
     Route: 048
  8. PLAVIX [Concomitant]
  9. KARDEGIC [Concomitant]
  10. TARDYFERON [Concomitant]
  11. VENTOLIN [Concomitant]
     Dosage: AS REQUIRED.

REACTIONS (11)
  - BRONCHOSPASM [None]
  - DRUG TOXICITY [None]
  - HYPERKALAEMIA [None]
  - INCORRECT DOSE ADMINISTERED [None]
  - METABOLIC ACIDOSIS [None]
  - RENAL FAILURE [None]
  - RESPIRATORY DISTRESS [None]
  - RHABDOMYOLYSIS [None]
  - STAPHYLOCOCCUS TEST POSITIVE [None]
  - SUICIDE ATTEMPT [None]
  - VENTRICULAR TACHYCARDIA [None]
